FAERS Safety Report 7198909-1 (Version None)
Quarter: 2010Q4

REPORT INFORMATION
  Report Type: 
  Country: None (occurrence: None)
  Receive Date: 20101227
  Receipt Date: 20101214
  Transmission Date: 20110411
  Serious: Yes (Hospitalization)
  Sender: FDA-Public Use
  Company Number: JP-GENENTECH-306575

PATIENT
  Age: 71 Year
  Sex: Female
  Weight: 29 kg

DRUGS (15)
  1. XOLAIR [Suspect]
     Indication: ASTHMA
     Dosage: 225 MG, BID
     Dates: start: 20090629
  2. XOLAIR [Suspect]
     Dosage: UNK
     Dates: start: 20090713
  3. XOLAIR [Suspect]
     Dosage: UNK
     Dates: start: 20090727
  4. XOLAIR [Suspect]
     Dosage: UNK
     Dates: start: 20090810
  5. XOLAIR [Suspect]
     Dosage: UNK
     Dates: start: 20090824
  6. XOLAIR [Suspect]
     Dosage: UNK
     Dates: start: 20090907
  7. XOLAIR [Suspect]
     Dosage: UNK
     Dates: start: 20090928
  8. XOLAIR [Suspect]
     Dosage: UNK
     Dates: start: 20091014
  9. XOLAIR [Suspect]
     Dosage: UNK
     Dates: start: 20091028
  10. ONON [Concomitant]
     Indication: PRODUCT USED FOR UNKNOWN INDICATION
  11. THEO-DUR [Concomitant]
     Indication: PRODUCT USED FOR UNKNOWN INDICATION
  12. BETAMETHASONE [Concomitant]
     Indication: PRODUCT USED FOR UNKNOWN INDICATION
     Dosage: UNK
     Dates: start: 20090914, end: 20090916
  13. SULTANOL [Concomitant]
     Indication: PRODUCT USED FOR UNKNOWN INDICATION
  14. PARIET [Concomitant]
     Indication: PRODUCT USED FOR UNKNOWN INDICATION
     Dosage: UNK
     Dates: start: 20090914
  15. ADVAIR [Concomitant]
     Indication: PRODUCT USED FOR UNKNOWN INDICATION

REACTIONS (1)
  - ASTHMA [None]
